FAERS Safety Report 7201483-4 (Version None)
Quarter: 2010Q4

REPORT INFORMATION
  Report Type: 
  Country: None (occurrence: None)
  Receive Date: 20101216
  Receipt Date: 20101201
  Transmission Date: 20110411
  Serious: Yes (Hospitalization)
  Sender: FDA-Public Use
  Company Number: 2010AP002562

PATIENT
  Age: 50 Year
  Sex: Female

DRUGS (5)
  1. TRAZODONE HYDROCHLORIDE TABLETS (100 MG) [Suspect]
     Indication: INSOMNIA
     Dosage: 200 MG; HS; PO
     Route: 048
     Dates: start: 20101029, end: 20101029
  2. SAVELLA [Suspect]
     Indication: FIBROMYALGIA
     Dosage: 12.5 MG, BID; PO, 25 MG; BID; PO, 50 MG; BID; PO
     Route: 048
     Dates: start: 20101020, end: 20101027
  3. SAVELLA [Suspect]
     Indication: FIBROMYALGIA
     Dosage: 12.5 MG, BID; PO, 25 MG; BID; PO, 50 MG; BID; PO
     Route: 048
     Dates: start: 20101014
  4. SAVELLA [Suspect]
     Indication: FIBROMYALGIA
     Dosage: 12.5 MG, BID; PO, 25 MG; BID; PO, 50 MG; BID; PO
     Route: 048
     Dates: start: 20101016
  5. ZOLPIDEM TARTRATE [Concomitant]

REACTIONS (5)
  - DEPRESSION [None]
  - MOOD SWINGS [None]
  - MULTIPLE DRUG OVERDOSE INTENTIONAL [None]
  - NEAR DROWNING [None]
  - SUICIDE ATTEMPT [None]
